FAERS Safety Report 19216430 (Version 2)
Quarter: 2021Q2

REPORT INFORMATION
  Report Type: Spontaneous
  Country: US (occurrence: US)
  Receive Date: 20210505
  Receipt Date: 20210511
  Transmission Date: 20210717
  Serious: No
  Sender: FDA-Public Use
  Company Number: US-TAKEDA-2021TUS027498

PATIENT
  Sex: Male

DRUGS (1)
  1. ALUNBRIG [Suspect]
     Active Substance: BRIGATINIB
     Indication: NEOPLASM MALIGNANT
     Dosage: 180 MILLIGRAM, QD
     Route: 065

REACTIONS (2)
  - Rash [Recovering/Resolving]
  - Hypersensitivity [Unknown]
